FAERS Safety Report 4443077-X (Version None)
Quarter: 2004Q3

REPORT INFORMATION
  Report Type: 
  Country: None (occurrence: None)
  Receive Date: 20040908
  Receipt Date: 20040827
  Transmission Date: 20050211
  Serious: Yes (Other)
  Sender: FDA-Public Use
  Company Number: US-JNJFOC-20040809891

PATIENT
  Sex: Female
  Weight: 68.04 kg

DRUGS (8)
  1. REMICADE [Suspect]
     Route: 042
  2. REMICADE [Suspect]
     Indication: RHEUMATOID ARTHRITIS
     Route: 042
  3. VASERETIC [Concomitant]
  4. VASERETIC [Concomitant]
  5. METHOTREXATE [Concomitant]
  6. FOLIC ACID [Concomitant]
  7. LEUCOVORIN CALCIUM [Concomitant]
  8. ZOCOR [Concomitant]

REACTIONS (1)
  - MASS [None]
